FAERS Safety Report 7296825-8 (Version None)
Quarter: 2011Q1

REPORT INFORMATION
  Report Type: 
  Country: None (occurrence: None)
  Receive Date: 20110216
  Receipt Date: 20101222
  Transmission Date: 20110831
  Serious: No
  Sender: FDA-Public Use
  Company Number: US-BAYER-2011-011748

PATIENT
  Sex: Female
  Weight: 73 kg

DRUGS (5)
  1. NORVASC [Concomitant]
  2. ALEVE (CAPLET) [Suspect]
     Indication: ARTHRALGIA
     Dosage: DAILY DOSE 1 DF
     Route: 048
     Dates: start: 20101221
  3. ZOCOR [Concomitant]
  4. OXYBUTYNIN [Concomitant]
     Dosage: 5 MG, UNK
  5. PRILOSEC [Concomitant]

REACTIONS (1)
  - INITIAL INSOMNIA [None]
